FAERS Safety Report 12701097 (Version 1)
Quarter: 2016Q3

REPORT INFORMATION
  Report Type: Spontaneous
  Country: RU (occurrence: RU)
  Receive Date: 20160831
  Receipt Date: 20160831
  Transmission Date: 20161109
  Serious: Yes (Hospitalization)
  Sender: FDA-Public Use
  Company Number: RU-ASTRAZENECA-2016SE90318

PATIENT
  Age: 65 Year
  Sex: Male
  Weight: 70 kg

DRUGS (6)
  1. ROZART [Concomitant]
  2. BRILINTA [Suspect]
     Active Substance: TICAGRELOR
     Indication: MYOCARDIAL INFARCTION
     Route: 048
     Dates: start: 201512
  3. NOLPAZA [Concomitant]
     Active Substance: PANTOPRAZOLE SODIUM
  4. DIROTON [Concomitant]
  5. ASPIRIN CARDIO [Concomitant]
     Active Substance: ASPIRIN
  6. BETALOC ZOK [Concomitant]
     Active Substance: METOPROLOL SUCCINATE

REACTIONS (3)
  - Drug dose omission [Unknown]
  - Dyspnoea [Unknown]
  - Vascular stent thrombosis [Recovered/Resolved]

NARRATIVE: CASE EVENT DATE: 201607
